FAERS Safety Report 8139407-8 (Version None)
Quarter: 2012Q1

REPORT INFORMATION
  Report Type: 
  Country: None (occurrence: None)
  Receive Date: 20120215
  Receipt Date: 20120206
  Transmission Date: 20120608
  Serious: Yes (Death, Other)
  Sender: FDA-Public Use
  Company Number: US-PURDUE-USA-2012-0082001

PATIENT
  Age: 49 Year
  Sex: Male

DRUGS (4)
  1. OXYCODONE HCL [Suspect]
     Indication: SUBSTANCE ABUSE
     Dosage: UNK, SEE TEXT
  2. SOMA [Suspect]
     Indication: SUBSTANCE ABUSE
     Dosage: UNK, SEE TEXT
  3. TEMAZEPAM [Suspect]
     Indication: SUBSTANCE ABUSE
     Dosage: UNK, SEE TEXT
  4. ALCOHOL [Suspect]
     Indication: SUBSTANCE ABUSE
     Dosage: UNK, SEE TEXT

REACTIONS (2)
  - SUBSTANCE ABUSE [None]
  - ROAD TRAFFIC ACCIDENT [None]
